FAERS Safety Report 23927365 (Version 2)
Quarter: 2024Q3

REPORT INFORMATION
  Report Type: Report from Study
  Country: CA (occurrence: CA)
  Receive Date: 20240531
  Receipt Date: 20240911
  Transmission Date: 20241017
  Serious: Yes (Other)
  Sender: JOHNSON AND JOHNSON
  Company Number: CA-JNJFOC-20240575817

PATIENT
  Age: 35 Year
  Sex: Female

DRUGS (3)
  1. REMICADE [Suspect]
     Active Substance: INFLIXIMAB
     Indication: Crohn^s disease
     Route: 041
     Dates: start: 20200420, end: 20240523
  2. REMICADE [Suspect]
     Active Substance: INFLIXIMAB
     Route: 041
     Dates: start: 20140423, end: 20240523
  3. REMICADE [Suspect]
     Active Substance: INFLIXIMAB
     Dosage: RE-START REMICADE AT LOADING DOSE WEEK 0, 4, THEN EVERY 4 WEEKS AT 10MG/KG
     Route: 041

REACTIONS (3)
  - Enteritis [Not Recovered/Not Resolved]
  - Hidradenitis [Not Recovered/Not Resolved]
  - Drug level above therapeutic [Unknown]

NARRATIVE: CASE EVENT DATE: 20240524
